FAERS Safety Report 8805511 (Version 2)
Quarter: 2013Q1

REPORT INFORMATION
  Report Type: Spontaneous
  Country: DE (occurrence: DE)
  Receive Date: 20120924
  Receipt Date: 20130118
  Transmission Date: 20140127
  Serious: Yes (Hospitalization)
  Sender: FDA-Public Use
  Company Number: DE-ALLERGAN-1213138US

PATIENT
  Age: 26 Year
  Sex: Female
  Weight: 76 kg

DRUGS (2)
  1. OZURDEX [Suspect]
     Indication: INTERMEDIATE UVEITIS
     Dosage: 0.7 MG, SINGLE
     Route: 031
     Dates: start: 20120502, end: 20120502
  2. OZURDEX [Suspect]
     Indication: MACULAR OEDEMA

REACTIONS (1)
  - Vitreous opacities [Unknown]
